FAERS Safety Report 5763558-6 (Version None)
Quarter: 2008Q2

REPORT INFORMATION
  Report Type: 
  Country: None (occurrence: None)
  Receive Date: 20080610
  Receipt Date: 20070119
  Transmission Date: 20081010
  Serious: Yes (Other)
  Sender: FDA-Public Use
  Company Number: JP-JNJFOC-20080601427

PATIENT

DRUGS (3)
  1. RISPERDAL [Suspect]
     Indication: DRUG USE FOR UNKNOWN INDICATION
     Route: 048
  2. TRANQUILIZERS [Concomitant]
  3. ANTIPSYCHOTIC DRUGS [Concomitant]

REACTIONS (5)
  - CONVULSION [None]
  - KORSAKOFF'S PSYCHOSIS ALCOHOLIC [None]
  - NAUSEA [None]
  - PALPITATIONS [None]
  - VOMITING [None]
